FAERS Safety Report 16020621 (Version 5)
Quarter: 2019Q4

REPORT INFORMATION
  Report Type: Report from Study
  Country: US (occurrence: US)
  Receive Date: 20190301
  Receipt Date: 20191106
  Transmission Date: 20200122
  Serious: Yes (Other)
  Sender: FDA-Public Use
  Company Number: US-ROCHE-2273194

PATIENT
  Sex: Male
  Weight: 105.33 kg

DRUGS (5)
  1. ESBRIET [Suspect]
     Active Substance: PIRFENIDONE
     Dosage: 3 PILLS 3 TIMES A DAY
     Route: 048
     Dates: start: 20190226
  2. CLONAZEPAM. [Suspect]
     Active Substance: CLONAZEPAM
     Indication: SLEEP DISORDER
     Dosage: TAKE 1 1/2 AT NIGHT FOR SLEEP
     Route: 065
  3. ATORVASTATIN [Concomitant]
     Active Substance: ATORVASTATIN
     Indication: BLOOD CHOLESTEROL
     Dosage: ONGOING: NO
     Route: 048
  4. ASPIRIN [ACETYLSALICYLIC ACID] [Concomitant]
     Active Substance: ASPIRIN
     Dosage: UNKNOWN
     Route: 048
  5. ESBRIET [Suspect]
     Active Substance: PIRFENIDONE
     Indication: IDIOPATHIC PULMONARY FIBROSIS
     Route: 048
     Dates: start: 201901

REACTIONS (13)
  - Fatigue [Unknown]
  - Inappropriate schedule of product administration [Unknown]
  - Faeces soft [Not Recovered/Not Resolved]
  - Abdominal discomfort [Recovered/Resolved with Sequelae]
  - Hepatic enzyme increased [Unknown]
  - Pain [Unknown]
  - Sinus congestion [Not Recovered/Not Resolved]
  - Gastric disorder [Not Recovered/Not Resolved]
  - Basal cell carcinoma [Unknown]
  - Malaise [Unknown]
  - Weight increased [Not Recovered/Not Resolved]
  - Inguinal hernia [Recovered/Resolved]
  - Nausea [Recovered/Resolved]
